FAERS Safety Report 12977501 (Version 1)
Quarter: 2016Q4

REPORT INFORMATION
  Report Type: Spontaneous
  Country: US (occurrence: US)
  Receive Date: 20161125
  Receipt Date: 20161125
  Transmission Date: 20170207
  Serious: Yes (Life-Threatening, Other)
  Sender: FDA-Public Use
  Company Number: None

PATIENT
  Age: 12 Month
  Sex: Female

DRUGS (1)
  1. TIMOLOL GEL FORMING SOLUTION [Suspect]
     Active Substance: TIMOLOL
     Indication: HAEMANGIOMA
     Route: 048

REACTIONS (5)
  - Blood glucose decreased [None]
  - Dehydration [None]
  - Bradycardia [None]
  - Accidental exposure to product [None]
  - Unresponsive to stimuli [None]

NARRATIVE: CASE EVENT DATE: 20160807
